FAERS Safety Report 11990636 (Version 3)
Quarter: 2016Q1

REPORT INFORMATION
  Report Type: Report from Study
  Country: DE (occurrence: DE)
  Receive Date: 20160202
  Receipt Date: 20160212
  Transmission Date: 20160526
  Serious: Yes (Life-Threatening, Hospitalization)
  Sender: FDA-Public Use
  Company Number: DE-BAYER-2015-440912

PATIENT
  Sex: Male

DRUGS (3)
  1. ASPIRIN. [Suspect]
     Active Substance: ASPIRIN
     Dosage: UNK
  2. ENOXAPARIN [Concomitant]
     Active Substance: ENOXAPARIN
     Dosage: 60 MG, BID
  3. RIVAROXABAN [Suspect]
     Active Substance: RIVAROXABAN
     Dosage: UNK

REACTIONS (6)
  - Hyperglycaemia [Recovered/Resolved]
  - Mouth haemorrhage [Recovered/Resolved]
  - Pleural effusion [Recovered/Resolved]
  - Epistaxis [Recovered/Resolved]
  - Facial bones fracture [Recovered/Resolved]
  - Fall [None]

NARRATIVE: CASE EVENT DATE: 20140713
